FAERS Safety Report 8007771-6 (Version None)
Quarter: 2011Q4

REPORT INFORMATION
  Report Type: 
  Country: None (occurrence: None)
  Receive Date: 20111227
  Receipt Date: 20110729
  Transmission Date: 20120403
  Serious: No
  Sender: FDA-Public Use
  Company Number: US-ABBOTT-11P-163-0842883-00

PATIENT
  Sex: Female

DRUGS (2)
  1. LUPRON DEPOT [Suspect]
     Dates: end: 20110701
  2. LUPRON DEPOT [Suspect]
     Indication: BREAST CANCER
     Dates: start: 20110701

REACTIONS (1)
  - HOT FLUSH [None]
